FAERS Safety Report 11112198 (Version 2)
Quarter: 2016Q1

REPORT INFORMATION
  Report Type: Spontaneous
  Country: IT (occurrence: IT)
  Receive Date: 20150514
  Receipt Date: 20160127
  Transmission Date: 20160525
  Serious: Yes (Hospitalization)
  Sender: FDA-Public Use
  Company Number: IT-ROCHE-1577658

PATIENT
  Age: 60 Year
  Sex: Male

DRUGS (3)
  1. SOVALDI [Interacting]
     Active Substance: SOFOSBUVIR
     Indication: HEPATIC CIRRHOSIS
     Dosage: 400 MG - FILM-COATED TABLET - (HDPE) BOTTLE - 28 T
     Route: 065
     Dates: start: 20150325, end: 20150428
  2. OLYSIO [Interacting]
     Active Substance: SIMEPREVIR
     Indication: HEPATIC CIRRHOSIS
     Dosage: 150 MG - HARD CAPSULE - ORAL USE - (PVC/PE/PVDC/AL
     Route: 048
     Dates: start: 20150325, end: 20150428
  3. COPEGUS [Suspect]
     Active Substance: RIBAVIRIN
     Indication: HEPATIC CIRRHOSIS
     Dosage: 42 X 200 MG FILM-COATED TABLETS IN BOTTLE
     Route: 048
     Dates: start: 20150325, end: 20150415

REACTIONS (4)
  - Haematemesis [Recovering/Resolving]
  - Pneumonitis [Recovering/Resolving]
  - Abdominal sepsis [Recovering/Resolving]
  - Drug interaction [Unknown]

NARRATIVE: CASE EVENT DATE: 20150415
